FAERS Safety Report 17193829 (Version 3)
Quarter: 2020Q1

REPORT INFORMATION
  Report Type: Spontaneous
  Country: JP (occurrence: JP)
  Receive Date: 20191223
  Receipt Date: 20200127
  Transmission Date: 20200409
  Serious: Yes (Hospitalization, Other)
  Sender: FDA-Public Use
  Company Number: JP-009507513-1912JPN003023J

PATIENT
  Age: 70 Year
  Sex: Male

DRUGS (2)
  1. BEXAROTENE. [Concomitant]
     Active Substance: BEXAROTENE
     Indication: CUTANEOUS T-CELL LYMPHOMA
     Dosage: UNK
     Route: 065
     Dates: end: 20191210
  2. ZOLINZA [Suspect]
     Active Substance: VORINOSTAT
     Indication: CUTANEOUS T-CELL LYMPHOMA
     Dosage: 200 MILLIGRAM, QD
     Route: 048
     Dates: start: 20191211, end: 20191217

REACTIONS (2)
  - Decreased appetite [Recovered/Resolved]
  - Atrial fibrillation [Recovered/Resolved]

NARRATIVE: CASE EVENT DATE: 20191213
